FAERS Safety Report 9333992 (Version 1)
Quarter: 2013Q2

REPORT INFORMATION
  Report Type: Spontaneous
  Country: US (occurrence: US)
  Receive Date: 20130606
  Receipt Date: 20130606
  Transmission Date: 20140414
  Serious: No
  Sender: FDA-Public Use
  Company Number: US-AMGEN-USASP2013013823

PATIENT
  Age: 74 Year
  Sex: Female

DRUGS (5)
  1. PROLIA [Suspect]
     Indication: OSTEOPOROSIS POSTMENOPAUSAL
     Dosage: UNK
     Dates: start: 201301
  2. NEXIUM                             /01479302/ [Concomitant]
  3. CALCIUM WITH VITAMIN D [Concomitant]
  4. BUMEX [Concomitant]
  5. VITAMIN D [Concomitant]
     Indication: OSTEOPOROSIS POSTMENOPAUSAL
     Dosage: UNK
     Dates: start: 201301

REACTIONS (3)
  - Hypertrichosis [Unknown]
  - Dental caries [Unknown]
  - Hot flush [Unknown]
